FAERS Safety Report 5683975-2 (Version None)
Quarter: 2008Q1

REPORT INFORMATION
  Report Type: 
  Country: None (occurrence: None)
  Receive Date: 20080328
  Receipt Date: 20080320
  Transmission Date: 20080703
  Serious: Yes (Other)
  Sender: FDA-Public Use
  Company Number: PHRM2008FR01102

PATIENT
  Age: 80 Year
  Sex: Male

DRUGS (4)
  1. TAHOR [Concomitant]
  2. TEMERIT [Concomitant]
  3. TAREG [Suspect]
     Indication: HYPERTENSION
     Dosage: 80 MG, QD
     Route: 048
     Dates: start: 20070301, end: 20080201
  4. TAREG [Suspect]
     Dosage: 40 MG, QD
     Route: 048
     Dates: start: 20080201

REACTIONS (3)
  - BLOOD PRESSURE SYSTOLIC DECREASED [None]
  - LOSS OF CONSCIOUSNESS [None]
  - MALAISE [None]
